FAERS Safety Report 9796787 (Version 4)
Quarter: 2014Q1

REPORT INFORMATION
  Report Type: Spontaneous
  Country: FR (occurrence: FR)
  Receive Date: 20140103
  Receipt Date: 20140304
  Transmission Date: 20141002
  Serious: Yes (Other)
  Sender: FDA-Public Use
  Company Number: FR-ABBVIE-13P-056-1181162-00

PATIENT
  Age: 27 Year
  Sex: Female

DRUGS (3)
  1. HUMIRA [Suspect]
     Indication: CROHN^S DISEASE
     Route: 058
     Dates: start: 20130624
  2. PREDNISOLONE [Suspect]
     Indication: CROHN^S DISEASE
     Dosage: VARIABLE
     Route: 048
     Dates: start: 20130206, end: 20130801
  3. IMUREL [Suspect]
     Indication: CROHN^S DISEASE
     Route: 048
     Dates: start: 20130206, end: 20130624

REACTIONS (1)
  - Hidradenitis [Not Recovered/Not Resolved]
